FAERS Safety Report 7065663-3 (Version None)
Quarter: 2010Q4

REPORT INFORMATION
  Report Type: 
  Country: None (occurrence: None)
  Receive Date: 20101027
  Receipt Date: 20090521
  Transmission Date: 20110411
  Serious: Yes (Hospitalization)
  Sender: FDA-Public Use
  Company Number: PHHY2009US66666

PATIENT
  Sex: Male

DRUGS (1)
  1. EXJADE [Suspect]
     Dosage: 1250 MG, DAILY
     Route: 048

REACTIONS (4)
  - IMPAIRED HEALING [None]
  - LEG AMPUTATION [None]
  - PRURITUS [None]
  - RASH [None]
